FAERS Safety Report 19805227 (Version 2)
Quarter: 2021Q3

REPORT INFORMATION
  Report Type: Spontaneous
  Country: IT (occurrence: IT)
  Receive Date: 20210908
  Receipt Date: 20210917
  Transmission Date: 20211014
  Serious: Yes (Other)
  Sender: FDA-Public Use
  Company Number: IT-SA-2021SA296204

PATIENT
  Age: 36 Year
  Sex: Female

DRUGS (8)
  1. TRASTUZUMAB. [Suspect]
     Active Substance: TRASTUZUMAB
     Indication: TRIPLE POSITIVE BREAST CANCER
     Dosage: 8 MG/KG, Q3W (LOADING DOSE)
     Dates: start: 201201, end: 201204
  2. DOCETAXEL. [Suspect]
     Active Substance: DOCETAXEL
     Indication: INVASIVE DUCTAL BREAST CARCINOMA
     Dosage: UNK, QCY(25% REDUCED)
     Dates: start: 201201, end: 2012
  3. TRASTUZUMAB. [Suspect]
     Active Substance: TRASTUZUMAB
     Indication: INVASIVE DUCTAL BREAST CARCINOMA
     Dosage: 6 MG/KG, Q3W
     Dates: start: 201201, end: 201204
  4. DOXORUBICIN [Concomitant]
     Active Substance: DOXORUBICIN
     Indication: INVASIVE DUCTAL BREAST CARCINOMA
  5. DOCETAXEL. [Suspect]
     Active Substance: DOCETAXEL
     Indication: TRIPLE POSITIVE BREAST CANCER
     Dosage: 100 MG/M2, Q3W (4 CYCLES)
     Dates: start: 201201, end: 201204
  6. DOXORUBICIN [Concomitant]
     Active Substance: DOXORUBICIN
     Indication: TRIPLE POSITIVE BREAST CANCER
     Dosage: 60 MG/M2, Q3W
     Dates: start: 201201, end: 2012
  7. CYCLOPHOSPHAMIDE. [Concomitant]
     Active Substance: CYCLOPHOSPHAMIDE
     Indication: TRIPLE POSITIVE BREAST CANCER
     Dosage: 600 MG/M2, Q3W
     Dates: start: 201201, end: 2012
  8. CYCLOPHOSPHAMIDE. [Concomitant]
     Active Substance: CYCLOPHOSPHAMIDE
     Indication: INVASIVE DUCTAL BREAST CARCINOMA

REACTIONS (2)
  - Hepatotoxicity [Recovering/Resolving]
  - Hypertransaminasaemia [Recovering/Resolving]

NARRATIVE: CASE EVENT DATE: 2012
